FAERS Safety Report 19142891 (Version 1)
Quarter: 2021Q2

REPORT INFORMATION
  Report Type: Spontaneous
  Country: SA (occurrence: SA)
  Receive Date: 20210415
  Receipt Date: 20210415
  Transmission Date: 20210717
  Serious: Yes (Hospitalization, Other)
  Sender: FDA-Public Use
  Company Number: SA-ALLERGAN-2115220US

PATIENT
  Sex: Female

DRUGS (2)
  1. XELJANZ [Suspect]
     Active Substance: TOFACITINIB CITRATE
     Indication: RHEUMATOID ARTHRITIS
  2. PROGESTERONE UNK [Suspect]
     Active Substance: PROGESTERONE
     Indication: VAGINAL HAEMORRHAGE

REACTIONS (4)
  - Cardiac ventricular thrombosis [Recovered/Resolved]
  - Acute myocardial infarction [Unknown]
  - Off label use [Unknown]
  - Splenic infarction [Unknown]
